FAERS Safety Report 4449436-3 (Version None)
Quarter: 2004Q3

REPORT INFORMATION
  Report Type: 
  Country: None (occurrence: None)
  Receive Date: 20040908
  Receipt Date: 20040826
  Transmission Date: 20050211
  Serious: Yes (Other)
  Sender: FDA-Public Use
  Company Number: CHNY2004BR01644

PATIENT
  Age: 6 Year
  Sex: Male
  Weight: 42 kg

DRUGS (1)
  1. AGASTEN (NCH) (CLEMASTINE HYDROGEN FUMARATE) [Suspect]
     Indication: URTICARIA
     Dosage: 5 ML, Q8H, ORAL
     Route: 048
     Dates: start: 20040818, end: 20040825

REACTIONS (4)
  - HEAD BANGING [None]
  - NERVOUSNESS [None]
  - PRURITUS GENERALISED [None]
  - URTICARIA GENERALISED [None]
